FAERS Safety Report 6291429-8 (Version None)
Quarter: 2009Q3

REPORT INFORMATION
  Report Type: 
  Country: None (occurrence: None)
  Receive Date: 20090729
  Receipt Date: 20090729
  Transmission Date: 20100115
  Serious: Yes (Hospitalization)
  Sender: FDA-Public Use
  Company Number: None

PATIENT
  Age: 30 Year
  Sex: Female
  Weight: 59.8748 kg

DRUGS (1)
  1. MIRENA [Suspect]
     Indication: CONTRACEPTION
     Dosage: 24 HOURS VAG
     Route: 067
     Dates: start: 20080202, end: 20090715

REACTIONS (2)
  - ABDOMINAL PAIN LOWER [None]
  - MIDDLE INSOMNIA [None]
